FAERS Safety Report 9159584 (Version 1)
Quarter: 2013Q1

REPORT INFORMATION
  Report Type: Spontaneous
  Country: US (occurrence: None)
  Receive Date: 20130312
  Receipt Date: 20130312
  Transmission Date: 20140127
  Serious: Yes (Hospitalization)
  Sender: FDA-Public Use
  Company Number: None

PATIENT
  Sex: Female
  Weight: 90 kg

DRUGS (1)
  1. XARELTO [Suspect]
     Dosage: 15MG DAILY PO
     Route: 048

REACTIONS (2)
  - Blood urine [None]
  - Faeces discoloured [None]
